FAERS Safety Report 9333157 (Version 1)
Quarter: 2013Q2

REPORT INFORMATION
  Report Type: Spontaneous
  Country: FR (occurrence: FR)
  Receive Date: 20130606
  Receipt Date: 20130606
  Transmission Date: 20140414
  Serious: Yes (Other)
  Sender: FDA-Public Use
  Company Number: FR-ELI_LILLY_AND_COMPANY-FR201305007985

PATIENT
  Age: 44 Year
  Sex: Female

DRUGS (2)
  1. ALIMTA [Suspect]
     Dosage: 500 MG, UNKNOWN
     Route: 042
  2. CISPLATINE [Concomitant]

REACTIONS (5)
  - Gastrointestinal oedema [Not Recovered/Not Resolved]
  - Bladder disorder [Not Recovered/Not Resolved]
  - Face oedema [Not Recovered/Not Resolved]
  - Oedema peripheral [Not Recovered/Not Resolved]
  - Abdominal pain [Not Recovered/Not Resolved]
